FAERS Safety Report 9089156 (Version 2)
Quarter: 2013Q1

REPORT INFORMATION
  Report Type: Report from Study
  Country: CR (occurrence: CR)
  Receive Date: 20130201
  Receipt Date: 20130208
  Transmission Date: 20140127
  Serious: Yes (Hospitalization)
  Sender: FDA-Public Use
  Company Number: CR-PFIZER INC-2013031848

PATIENT
  Age: 65 Year
  Sex: Female
  Weight: 71 kg

DRUGS (8)
  1. CELECOXIB [Suspect]
     Indication: ARTHRITIS
     Dosage: 100 MG, 2X/DAY
     Route: 048
     Dates: start: 20121129, end: 20130109
  2. NEXIUM [Concomitant]
     Indication: GASTRITIS PROPHYLAXIS
     Dosage: ONCE DAILY
     Route: 048
     Dates: start: 20121129, end: 20130109
  3. IRBESARTAN [Concomitant]
     Indication: HYPERTENSION
     Dosage: 150 MG, 2X/DAY
     Route: 048
     Dates: start: 199602
  4. HYDROCHLOROTHIAZIDE [Concomitant]
     Indication: HYPERTENSION
     Dosage: 25 MG, 1X/DAY
     Route: 048
     Dates: start: 199601
  5. NITROGLICERIN [Concomitant]
     Indication: ANGINA PECTORIS
     Dosage: 0.5 MG, AS NEEDED
     Route: 060
     Dates: start: 201102
  6. AMIODARONE [Concomitant]
     Indication: ARRHYTHMIA
     Dosage: 200 MG, 1X/DAY
     Dates: start: 201103
  7. CALCIUM CARBONATE [Concomitant]
     Indication: OSTEOPENIA
     Dosage: 600 MG, 1X/DAY
     Route: 048
     Dates: start: 201207
  8. VITAMIN D [Concomitant]
     Indication: OSTEOPENIA
     Dosage: 0.25 DROPS, 1X/DAY
     Route: 048
     Dates: start: 201107

REACTIONS (2)
  - Asthmatic crisis [Recovered/Resolved]
  - Bronchitis [Recovered/Resolved]
